FAERS Safety Report 8850952 (Version 1)
Quarter: 2012Q4

REPORT INFORMATION
  Report Type: 
  Country: AT (occurrence: AT)
  Receive Date: 20121019
  Receipt Date: 20121019
  Transmission Date: 20130627
  Serious: Yes (Other)
  Sender: FDA-Public Use
  Company Number: AT-AMGEN-AUTSP2012066168

PATIENT
  Sex: Male

DRUGS (3)
  1. XGEVA [Suspect]
     Indication: PRODUCT USED FOR UNKNOWN INDICATION
  2. VITAMIN D                          /00318501/ [Concomitant]
  3. CALCIUM [Concomitant]

REACTIONS (3)
  - Hypocalcaemia [Recovered/Resolved]
  - Convulsion [Recovered/Resolved]
  - Hyperhidrosis [Recovered/Resolved]
